FAERS Safety Report 5202128-5 (Version None)
Quarter: 2007Q1

REPORT INFORMATION
  Report Type: 
  Country: None (occurrence: None)
  Receive Date: 20070109
  Receipt Date: 20061227
  Transmission Date: 20070707
  Serious: No
  Sender: FDA-Public Use
  Company Number: PHBS2006JP18339

PATIENT
  Age: 21 Year
  Sex: Male

DRUGS (3)
  1. NEORAL [Suspect]
     Indication: THROMBOTIC THROMBOCYTOPENIC PURPURA
     Dosage: 250 MG/D
     Route: 048
     Dates: start: 20000301, end: 20040101
  2. VINCRISTINE SULFATE [Concomitant]
     Dosage: 1 MG/D
     Route: 065
     Dates: start: 19990101
  3. IMMUNE GLOBULIN INTRAVENOUS (HUMAN) [Concomitant]
     Dosage: 25 G/D
     Route: 065
     Dates: start: 19990101

REACTIONS (4)
  - DISEASE RECURRENCE [None]
  - GLOMERULOSCLEROSIS [None]
  - PLATELET COUNT DECREASED [None]
  - THROMBOTIC THROMBOCYTOPENIC PURPURA [None]
